FAERS Safety Report 19086331 (Version 1)
Quarter: 2021Q2

REPORT INFORMATION
  Report Type: Spontaneous
  Country: NL (occurrence: NL)
  Receive Date: 20210402
  Receipt Date: 20210402
  Transmission Date: 20210717
  Serious: Yes (Hospitalization, Other)
  Sender: FDA-Public Use
  Company Number: NL-PFIZER INC-2021302543

PATIENT

DRUGS (8)
  1. FLUOROURACIL. [Suspect]
     Active Substance: FLUOROURACIL
     Indication: COLORECTAL CANCER
     Dosage: 400 MG/M2, WITHIN 4 MINUTES AS PER PROTOCOL
     Route: 065
     Dates: start: 20201202, end: 20210120
  2. IRINOTECAN HCL [Suspect]
     Active Substance: IRINOTECAN HYDROCHLORIDE
     Dosage: 180 MG/M2, IN 60 MINUTES AS PER PROTOCOL
     Route: 042
     Dates: end: 20210210
  3. LEUCOVORINE [Suspect]
     Active Substance: LEUCOVORIN
     Indication: COLORECTAL CANCER
     Dosage: 400 MG/M2 IN 120 MINUTES AS PER PROTOCOL
     Route: 042
     Dates: start: 20201202, end: 20210120
  4. LEUCOVORINE [Suspect]
     Active Substance: LEUCOVORIN
     Dosage: 400 MG/M2 IN 120 MINUTES AS PER PROTOCOL
     Route: 042
     Dates: end: 20210210
  5. FLUOROURACIL. [Suspect]
     Active Substance: FLUOROURACIL
     Dosage: 400 MG/M2, WITHIN 4 MINUTES AS PER PROTOCOL
     Route: 065
     Dates: end: 20210210
  6. BEVACIZUMAB. [Suspect]
     Active Substance: BEVACIZUMAB
     Dosage: 5 MG/KG, IN 15?30 MINUTES AS PER PROTOCOL
     Route: 042
     Dates: end: 20210210
  7. BEVACIZUMAB. [Suspect]
     Active Substance: BEVACIZUMAB
     Indication: COLORECTAL CANCER
     Dosage: 5 MG/KG, IN 15?30 MINUTES AS PER PROTOCOL
     Route: 042
     Dates: start: 20201202, end: 20210120
  8. IRINOTECAN HCL [Suspect]
     Active Substance: IRINOTECAN HYDROCHLORIDE
     Indication: COLORECTAL CANCER
     Dosage: 180 MG/M2, IN 60 MINUTES AS PER PROTOCOL
     Route: 042
     Dates: start: 20201202, end: 20210120

REACTIONS (3)
  - Large intestine perforation [Unknown]
  - Pyrexia [Recovering/Resolving]
  - Embolism [Recovering/Resolving]

NARRATIVE: CASE EVENT DATE: 20210121
